FAERS Safety Report 16499695 (Version 1)
Quarter: 2019Q3

REPORT INFORMATION
  Report Type: Spontaneous
  Country: SE (occurrence: SE)
  Receive Date: 20190701
  Receipt Date: 20190701
  Transmission Date: 20191004
  Serious: Yes (Other)
  Sender: FDA-Public Use
  Company Number: SE-ACCORD-135842

PATIENT
  Age: 81 Year
  Sex: Male

DRUGS (2)
  1. AMLODIPINE [Suspect]
     Active Substance: AMLODIPINE BESYLATE
     Indication: PRODUCT USED FOR UNKNOWN INDICATION
     Dosage: INGESTING 0.5-1 G OF AMLODIPINE (ALSO RECEIVED 1 GRAM DOSE)
     Route: 048
  2. OCTREOTIDE/OCTREOTIDE ACETATE [Concomitant]
     Dosage: LAST DOSE AT 36 HOURS

REACTIONS (3)
  - Myocardial depression [Recovered/Resolved]
  - Haemodynamic instability [Recovered/Resolved]
  - Toxicity to various agents [Unknown]
